FAERS Safety Report 14092905 (Version 1)
Quarter: 2017Q4

REPORT INFORMATION
  Report Type: Spontaneous
  Country: KR (occurrence: KR)
  Receive Date: 20171016
  Receipt Date: 20171016
  Transmission Date: 20180321
  Serious: Yes (Hospitalization)
  Sender: FDA-Public Use
  Company Number: KR-MYLANLABS-2017M1062402

PATIENT
  Age: 61 Year
  Sex: Female

DRUGS (5)
  1. PREDNISOLONE. [Suspect]
     Active Substance: PREDNISOLONE
     Indication: FACIAL PARALYSIS
     Dosage: 60 MG, QD
     Route: 048
  2. OLMESARTAN [Concomitant]
     Active Substance: OLMESARTAN
     Indication: PRODUCT USED FOR UNKNOWN INDICATION
     Dosage: 20 MG, UNK
  3. FERROUS                            /00023501/ [Concomitant]
     Indication: PRODUCT USED FOR UNKNOWN INDICATION
     Dosage: UNK
  4. ACICLOVIR [Suspect]
     Active Substance: ACYCLOVIR
     Indication: FACIAL PARALYSIS
     Dosage: 400 MG, TID
     Route: 048
  5. CALCIUM [Concomitant]
     Active Substance: CALCIUM
     Indication: PRODUCT USED FOR UNKNOWN INDICATION
     Dosage: UNK

REACTIONS (4)
  - Asthenia [Unknown]
  - Hyponatraemia [Recovered/Resolved]
  - Confusional state [Unknown]
  - Oedema [Unknown]
